FAERS Safety Report 18321211 (Version 3)
Quarter: 2020Q4

REPORT INFORMATION
  Report Type: Report from Study
  Country: US (occurrence: US)
  Receive Date: 20200928
  Receipt Date: 20201013
  Transmission Date: 20210113
  Serious: No
  Sender: FDA-Public Use
  Company Number: US-MYLANLABS-2020M1081921

PATIENT
  Age: 31 Year
  Sex: Female
  Weight: 73.93 kg

DRUGS (1)
  1. GLATIRAMER ACETATE INJECTION [Suspect]
     Active Substance: GLATIRAMER ACETATE
     Indication: MULTIPLE SCLEROSIS
     Dosage: 40 MILLIGRAM, 3XW
     Route: 058
     Dates: start: 202009

REACTIONS (7)
  - Pruritus [Not Recovered/Not Resolved]
  - Injection site swelling [Unknown]
  - Hypoaesthesia [Unknown]
  - Muscular weakness [Unknown]
  - Flushing [Not Recovered/Not Resolved]
  - Urticaria [Not Recovered/Not Resolved]
  - Injection site mass [Unknown]

NARRATIVE: CASE EVENT DATE: 202009
